FAERS Safety Report 25504983 (Version 2)
Quarter: 2025Q3

REPORT INFORMATION
  Report Type: Spontaneous
  Country: EU (occurrence: EU)
  Receive Date: 20250702
  Receipt Date: 20250707
  Transmission Date: 20251020
  Serious: Yes (Other)
  Sender: SANDOZ
  Company Number: EU-NOVPHSZ-PHHY2017DE122111

PATIENT
  Age: 8 Year
  Sex: Male

DRUGS (23)
  1. ALEMTUZUMAB [Suspect]
     Active Substance: ALEMTUZUMAB
     Indication: Bone marrow conditioning regimen
     Dosage: .2 MG/KG,QD; ON DAY -9 AND -8
     Route: 065
  2. ALEMTUZUMAB [Suspect]
     Active Substance: ALEMTUZUMAB
     Dosage: 0.2 MG/KG/DAY ON DAYS -9 AND -8
     Route: 065
  3. ALEMTUZUMAB [Suspect]
     Active Substance: ALEMTUZUMAB
     Dosage: 2 MG/KG,QD; ON DAY -9 AND -8
     Route: 065
  4. CYCLOPHOSPHAMIDE [Suspect]
     Active Substance: CYCLOPHOSPHAMIDE
     Indication: Prophylaxis against graft versus host disease
     Dosage: 14.5 MG/KG/DAY ON DAYS -3 AND -2
     Route: 065
  5. CYCLOPHOSPHAMIDE [Suspect]
     Active Substance: CYCLOPHOSPHAMIDE
     Indication: Bone marrow conditioning regimen
     Dosage: 2 X 50 MG/KG/DAY ON DAYS +3 AND +4
     Route: 065
  6. CYCLOPHOSPHAMIDE [Suspect]
     Active Substance: CYCLOPHOSPHAMIDE
     Indication: Stem cell transplant
     Dosage: 2 X 50 MG/KG/DAY ON DAYS +3 AND +4
     Route: 065
  7. FLUDARABINE [Suspect]
     Active Substance: FLUDARABINE PHOSPHATE
     Indication: Bone marrow conditioning regimen
     Dosage: 30 MG/M2, QD
     Route: 065
  8. FLUDARABINE [Suspect]
     Active Substance: FLUDARABINE PHOSPHATE
     Dosage: 30 MG/M2/DAY ON DAYS -7 TO -3
     Route: 065
  9. MYCOPHENOLATE MOFETIL [Suspect]
     Active Substance: MYCOPHENOLATE MOFETIL
     Indication: Prophylaxis against graft versus host disease
     Dosage: 15 MG/KG, TID FROM DAY +5 TO DAY +35
     Route: 065
  10. MYCOPHENOLATE MOFETIL [Suspect]
     Active Substance: MYCOPHENOLATE MOFETIL
     Indication: Stem cell transplant
     Route: 065
  11. MYCOPHENOLATE MOFETIL [Suspect]
     Active Substance: MYCOPHENOLATE MOFETIL
     Indication: Bone marrow conditioning regimen
  12. TACROLIMUS [Suspect]
     Active Substance: TACROLIMUS
     Indication: Bone marrow conditioning regimen
     Route: 042
  13. TACROLIMUS [Suspect]
     Active Substance: TACROLIMUS
     Indication: Prophylaxis against graft versus host disease
     Route: 048
  14. TACROLIMUS [Suspect]
     Active Substance: TACROLIMUS
     Indication: Stem cell transplant
  15. THIOTEPA [Suspect]
     Active Substance: THIOTEPA
     Dosage: 2X5 MG/KG/DAY ON DAY -4
     Route: 065
  16. THIOTEPA [Suspect]
     Active Substance: THIOTEPA
     Indication: Bone marrow conditioning regimen
     Dosage: 2X5 MG/KG/DAY ON DAY -4
     Route: 065
  17. TREOSULFAN [Suspect]
     Active Substance: TREOSULFAN
     Indication: Bone marrow conditioning regimen
     Dosage: 14 G/M2, QD
     Route: 065
  18. TREOSULFAN [Suspect]
     Active Substance: TREOSULFAN
     Route: 065
  19. GRANULOCYTE COLONY-STIMULATING FACTOR NOS [Concomitant]
     Active Substance: GRANULOCYTE COLONY-STIMULATING FACTOR NOS
     Indication: Product used for unknown indication
     Dosage: 5 UG, QD, 5 G/KG/DAY FROM DAY +5 UNTIL ENGRAFTMENT
     Route: 042
  20. GRANULOCYTE COLONY-STIMULATING FACTOR NOS [Concomitant]
     Active Substance: GRANULOCYTE COLONY-STIMULATING FACTOR NOS
     Dosage: 5 UG, QD, 5 G/KG/DAY FROM DAY +5 UNTIL ENGRAFTMENT
     Route: 042
  21. HYDROXYUREA [Concomitant]
     Active Substance: HYDROXYUREA
     Indication: Sickle cell disease
     Route: 065
  22. LEVETIRACETAM [Concomitant]
     Active Substance: LEVETIRACETAM
     Indication: Seizure prophylaxis
     Route: 065
  23. LEVETIRACETAM [Concomitant]
     Active Substance: LEVETIRACETAM
     Indication: Prophylaxis

REACTIONS (5)
  - Mucosal inflammation [Unknown]
  - Graft versus host disease in skin [Unknown]
  - Cytomegalovirus infection reactivation [Recovered/Resolved]
  - Cytomegalovirus infection [Unknown]
  - Product use in unapproved indication [Unknown]
